FAERS Safety Report 10255503 (Version 1)
Quarter: 2014Q2

REPORT INFORMATION
  Report Type: Spontaneous
  Country: US (occurrence: None)
  Receive Date: 20140522
  Receipt Date: 20140522
  Transmission Date: 20141212
  Serious: No
  Sender: FDA-Public Use
  Company Number: 1000066108

PATIENT
  Sex: Female

DRUGS (5)
  1. TUDORZA PRESSAIR (ACLIDINIUM BROMIDE) (400 MICROGRAM, POWDER) [Suspect]
     Indication: CHRONIC OBSTRUCTIVE PULMONARY DISEASE
     Dosage: 800 MCG , (400 MCG, 2 IN 1 D, 02/12/2014 - ONGOING THERAPY
     Dates: start: 20140212
  2. BENICAR (OLMESARTAN MEDOXOMIL) [Concomitant]
  3. NEXIUM (ESOMEPRAZOLE) [Concomitant]
  4. ALBUTEROL SULFATE (SALBUTAMOL SULFATE) [Concomitant]
  5. OXYGEN [Concomitant]

REACTIONS (1)
  - Oedema peripheral [None]
